FAERS Safety Report 5211492-2 (Version None)
Quarter: 2007Q1

REPORT INFORMATION
  Report Type: 
  Country: None (occurrence: None)
  Receive Date: 20070112
  Receipt Date: 20070105
  Transmission Date: 20070707
  Serious: Yes (Hospitalization, Other)
  Sender: FDA-Public Use
  Company Number: 163-21880-06120874

PATIENT
  Age: 57 Year
  Sex: Female

DRUGS (9)
  1. REVLIMID [Suspect]
     Indication: MULTIPLE MYELOMA
     Dosage: 25 MG, 1 IN 1 D, ORAL
     Route: 048
     Dates: start: 20061122, end: 20061212
  2. DECADRON [Concomitant]
  3. PROCRIT [Concomitant]
  4. LORTAB [Concomitant]
  5. HYZAAR [Concomitant]
  6. CALCIUM (CALTRATE) (CALCIUM CARBONATE) [Concomitant]
  7. DOXEPIN HCL [Concomitant]
  8. XANAX [Concomitant]
  9. SKELAXIN [Concomitant]

REACTIONS (5)
  - ATELECTASIS [None]
  - BLOOD HUMAN CHORIONIC GONADOTROPIN INCREASED [None]
  - PLEURAL EFFUSION [None]
  - PREGNANCY TEST URINE POSITIVE [None]
  - PULMONARY EMBOLISM [None]
